FAERS Safety Report 23393853 (Version 4)
Quarter: 2024Q1

REPORT INFORMATION
  Report Type: Report from Study
  Country: ES (occurrence: ES)
  Receive Date: 20240111
  Receipt Date: 20240321
  Transmission Date: 20240410
  Serious: Yes (Hospitalization, Other)
  Sender: FDA-Public Use
  Company Number: ES-BAXTER-2023BAX039383

PATIENT
  Age: 64 Year
  Sex: Female
  Weight: 50 kg

DRUGS (24)
  1. DOXORUBICIN HYDROCHLORIDE [Suspect]
     Active Substance: DOXORUBICIN HYDROCHLORIDE
     Indication: Diffuse large B-cell lymphoma stage III
     Dosage: 77.5 MG, EVERY 3 WEEKS
     Route: 042
     Dates: start: 20231128
  2. VINCRISTINE [Suspect]
     Active Substance: VINCRISTINE
     Indication: Diffuse large B-cell lymphoma stage III
     Dosage: 100 MG, EVERY 3 WEEKS
     Route: 042
     Dates: start: 20231121
  3. RITUXIMAB [Suspect]
     Active Substance: RITUXIMAB
     Indication: Diffuse large B-cell lymphoma stage III
     Dosage: 581.25 MG, EVERY 3 WEEKS
     Route: 042
     Dates: start: 20231128
  4. EPCORITAMAB [Suspect]
     Active Substance: EPCORITAMAB
     Indication: Diffuse large B-cell lymphoma stage III
     Dosage: 0.16 MG; C1, D1, TOTAL
     Route: 058
     Dates: start: 20231128, end: 20231128
  5. EPCORITAMAB [Suspect]
     Active Substance: EPCORITAMAB
     Dosage: 0.8 MG; INTERMEDIATE DOSE, C1, D1, TOTAL
     Dates: start: 20231205, end: 20231205
  6. EPCORITAMAB [Suspect]
     Active Substance: EPCORITAMAB
     Dosage: 48 MG, WEEKLY; FULL DOSE , C1, D15, AND 22
     Dates: start: 20231212
  7. PREDNISONE [Suspect]
     Active Substance: PREDNISONE
     Indication: Diffuse large B-cell lymphoma stage III
     Dosage: CL-6, DAY 1-5
     Route: 048
     Dates: start: 20231128
  8. CYCLOPHOSPHAMIDE [Suspect]
     Active Substance: CYCLOPHOSPHAMIDE
     Indication: Diffuse large B-cell lymphoma stage III
     Dosage: 1162.5 MG, EVERY 3 WEEKS
     Route: 042
     Dates: start: 20231128
  9. LORAZEPAM [Concomitant]
     Active Substance: LORAZEPAM
     Indication: Psychiatric disorder prophylaxis
     Dosage: 1 MG, TWICE
  10. ONDANSETRON [Concomitant]
     Active Substance: ONDANSETRON
     Indication: Prophylaxis of nausea and vomiting
     Dosage: 8 MG, AS NEEDED
     Dates: start: 20231121
  11. CODEINE [Concomitant]
     Active Substance: CODEINE
     Indication: Pain prophylaxis
     Dosage: 28.7 MG, 3X/DAY
     Dates: start: 20231107
  12. ALLOPURINOL [Concomitant]
     Active Substance: ALLOPURINOL
     Indication: Prophylaxis
     Dosage: 300 MG, 1X/DAY
     Dates: start: 20231114, end: 20231218
  13. ACYCLOVIR [Concomitant]
     Active Substance: ACYCLOVIR
     Indication: Infection prophylaxis
     Dosage: 800 MG, 1X/DAY
     Dates: start: 20231120
  14. MOVICOL [Concomitant]
     Active Substance: POLYETHYLENE GLYCOL 3350\POTASSIUM CHLORIDE\SODIUM BICARBONATE\SODIUM CHLORIDE
     Indication: Constipation prophylaxis
     Dosage: 125 ML, AS NEEDED
     Dates: start: 20231121
  15. IVABRADINE [Concomitant]
     Active Substance: IVABRADINE
     Indication: Arteriosclerosis coronary artery
     Dosage: 2.5 MG, 2X/DAY
  16. OMEPRAZOLE [Concomitant]
     Active Substance: OMEPRAZOLE
     Indication: Gastrointestinal disorder prophylaxis
     Dosage: 20 MG, 1X/DAY
     Dates: start: 20231107
  17. SULPIRIDE [Concomitant]
     Active Substance: SULPIRIDE
     Indication: Prophylaxis
     Dosage: 50 MG, AS NEEDED
     Dates: start: 20231204
  18. ACETAMINOPHEN [Concomitant]
     Active Substance: ACETAMINOPHEN
     Indication: Pain prophylaxis
     Dosage: 1 G, AS NEEDED
     Dates: start: 20231011
  19. SULFAMETHOXAZOLE [Concomitant]
     Active Substance: SULFAMETHOXAZOLE
     Indication: Infection prophylaxis
     Dosage: 400 MG, 3/WEEKS
     Dates: start: 20231120
  20. TRIMETHOPRIM NTN [Concomitant]
     Indication: Infection prophylaxis
     Dosage: 80 MG, 3/WEEKS
     Dates: start: 20231120
  21. VINCRISTINE [Concomitant]
     Active Substance: VINCRISTINE
     Indication: Premedication
     Dosage: 1 MG
     Dates: start: 20231121, end: 20231121
  22. GRANULOCYTE COLONY-STIMULATING FACTOR NOS [Concomitant]
     Active Substance: GRANULOCYTE COLONY-STIMULATING FACTOR NOS
     Indication: Neutropenia
     Dosage: 300 UG, AS NEEDED
     Dates: start: 20231204
  23. PREDNISONE [Concomitant]
     Active Substance: PREDNISONE
     Indication: Premedication
     Dosage: 60 MG, 1X/DAY (EVERY 24 HOURS)
     Dates: start: 20231114, end: 20231120
  24. DEXAMETHASONE [Concomitant]
     Active Substance: DEXAMETHASONE
     Indication: Prophylaxis
     Dosage: 16 MG, DAILY
     Dates: start: 20231205

REACTIONS (2)
  - Cytokine release syndrome [Recovered/Resolved]
  - Influenza [Recovered/Resolved]

NARRATIVE: CASE EVENT DATE: 20231213
